FAERS Safety Report 18288323 (Version 1)
Quarter: 2020Q3

REPORT INFORMATION
  Report Type: Spontaneous
  Country: US (occurrence: US)
  Receive Date: 20200921
  Receipt Date: 20200921
  Transmission Date: 20201103
  Serious: No
  Sender: FDA-Public Use
  Company Number: None

PATIENT
  Sex: Female

DRUGS (1)
  1. MAKENA [Suspect]
     Active Substance: HYDROXYPROGESTERONE CAPROATE
     Indication: HIGH RISK PREGNANCY
     Dosage: ?          OTHER STRENGTH:275MG/1.1M;?
     Route: 058
     Dates: start: 20200909

REACTIONS (3)
  - Chromaturia [None]
  - Muscle spasms [None]
  - Pelvic pain [None]
